FAERS Safety Report 23977923 (Version 1)
Quarter: 2024Q2

REPORT INFORMATION
  Report Type: Spontaneous
  Country: US (occurrence: US)
  Receive Date: 20240614
  Receipt Date: 20240614
  Transmission Date: 20240716
  Serious: No
  Sender: FDA-Public Use
  Company Number: ENDB23-02677

PATIENT
  Age: 6 Year
  Sex: Female

DRUGS (3)
  1. SUPPRELIN LA [Suspect]
     Active Substance: HISTRELIN ACETATE
     Indication: Precocious puberty
     Dosage: 50 MG, UNKNOWN (ONCE EVERY 12 MONTHS) (CYCLE ONE)
     Route: 065
     Dates: start: 20211007
  2. SUPPRELIN LA [Suspect]
     Active Substance: HISTRELIN ACETATE
     Indication: Precocious puberty
     Dosage: 50 MG, UNKNOWN (ONCE EVERY 12 MONTHS) (CYCLE ONE)
     Route: 065
     Dates: start: 20211007
  3. SUPPRELIN LA [Suspect]
     Active Substance: HISTRELIN ACETATE
     Indication: Precocious puberty
     Dosage: 50 MG, UNKNOWN (ONCE EVERY 12 MONTHS) (CYCLE ONE)
     Route: 065
     Dates: start: 20211007

REACTIONS (2)
  - Mood swings [Unknown]
  - Incorrect product administration duration [Not Recovered/Not Resolved]

NARRATIVE: CASE EVENT DATE: 20220101
